FAERS Safety Report 5072913-1 (Version None)
Quarter: 2006Q3

REPORT INFORMATION
  Report Type: 
  Country: None (occurrence: None)
  Receive Date: 20060802
  Receipt Date: 20060713
  Transmission Date: 20061208
  Serious: No
  Sender: FDA-Public Use
  Company Number: PE200607002279

PATIENT
  Age: 51 Year
  Sex: Male

DRUGS (1)
  1. CYMBALTA [Suspect]
     Indication: MAJOR DEPRESSION
     Dosage: 60 MG, DAILY (1/D), ORAL
     Route: 048

REACTIONS (1)
  - HEPATIC FUNCTION ABNORMAL [None]
